FAERS Safety Report 8942368 (Version 1)
Quarter: 2012Q4

REPORT INFORMATION
  Report Type: Spontaneous
  Country: BE (occurrence: None)
  Receive Date: 20121121
  Receipt Date: 20121121
  Transmission Date: 20130627
  Serious: Yes (Life-Threatening, Hospitalization, Other)
  Sender: FDA-Public Use
  Company Number: A-12-054

PATIENT
  Age: 38 Year
  Sex: Female

DRUGS (2)
  1. ALBUTEROL (+) SALBUTAMOL [Suspect]
     Indication: WHEEZING
     Dosage: 0.1mg/kg/dose TID 054
  2. UNSPECIFIED INGREDIENTS [Suspect]

REACTIONS (4)
  - Electrocardiogram ST segment elevation [None]
  - Chest pain [None]
  - Hyperhidrosis [None]
  - Nausea [None]
